FAERS Safety Report 25431022 (Version 1)
Quarter: 2025Q2

REPORT INFORMATION
  Report Type: Spontaneous
  Country: CN (occurrence: CN)
  Receive Date: 20250612
  Receipt Date: 20250612
  Transmission Date: 20250717
  Serious: Yes (Hospitalization)
  Sender: BEIGENE
  Company Number: CN-BEIGENE-BGN-2025-009211

PATIENT
  Age: 62 Year

DRUGS (12)
  1. TISLELIZUMAB [Suspect]
     Active Substance: TISLELIZUMAB
     Indication: Lung squamous cell carcinoma stage III
  2. TISLELIZUMAB [Suspect]
     Active Substance: TISLELIZUMAB
  3. TISLELIZUMAB [Suspect]
     Active Substance: TISLELIZUMAB
     Route: 041
  4. TISLELIZUMAB [Suspect]
     Active Substance: TISLELIZUMAB
  5. TISLELIZUMAB [Suspect]
     Active Substance: TISLELIZUMAB
     Route: 041
  6. TISLELIZUMAB [Suspect]
     Active Substance: TISLELIZUMAB
  7. CARBOPLATIN [Suspect]
     Active Substance: CARBOPLATIN
     Indication: Lung squamous cell carcinoma stage III
  8. CARBOPLATIN [Suspect]
     Active Substance: CARBOPLATIN
     Route: 041
  9. CARBOPLATIN [Suspect]
     Active Substance: CARBOPLATIN
  10. PACLITAXEL [Suspect]
     Active Substance: PACLITAXEL
     Indication: Lung squamous cell carcinoma stage III
  11. PACLITAXEL [Suspect]
     Active Substance: PACLITAXEL
     Route: 041
  12. PACLITAXEL [Suspect]
     Active Substance: PACLITAXEL

REACTIONS (1)
  - Myelosuppression [Recovering/Resolving]
